FAERS Safety Report 9724100 (Version 2)
Quarter: 2014Q2

REPORT INFORMATION
  Report Type: Spontaneous
  Country: US (occurrence: US)
  Receive Date: 20131202
  Receipt Date: 20140619
  Transmission Date: 20141212
  Serious: No
  Sender: FDA-Public Use
  Company Number: US-009507513-1311USA007171

PATIENT
  Age: 21 Year
  Sex: Female
  Weight: 110.66 kg

DRUGS (2)
  1. NEXPLANON [Suspect]
     Dosage: 1 ROD/3 YEARS
     Route: 059
     Dates: start: 20131010, end: 20131010
  2. NEXPLANON [Suspect]
     Dosage: 1 ROD/3 YEARS
     Route: 059
     Dates: start: 20131010

REACTIONS (2)
  - Device difficult to use [Recovered/Resolved]
  - Product quality issue [Unknown]
